FAERS Safety Report 9004960 (Version 1)
Quarter: 2013Q1

REPORT INFORMATION
  Report Type: Spontaneous
  Country: US (occurrence: US)
  Receive Date: 20130109
  Receipt Date: 20130109
  Transmission Date: 20140127
  Serious: No
  Sender: FDA-Public Use
  Company Number: US-BAYER-2013-002087

PATIENT
  Sex: Female

DRUGS (1)
  1. GIANVI [Suspect]
     Route: 048

REACTIONS (2)
  - Abnormal withdrawal bleeding [None]
  - Inappropriate schedule of drug administration [None]
